FAERS Safety Report 7387094-9 (Version None)
Quarter: 2011Q1

REPORT INFORMATION
  Report Type: 
  Country: None (occurrence: None)
  Receive Date: 20110331
  Receipt Date: 20110321
  Transmission Date: 20110831
  Serious: Yes (Death, Hospitalization)
  Sender: FDA-Public Use
  Company Number: DE-SOLVAY-00309004521

PATIENT
  Age: 24727 Day
  Sex: Male
  Weight: 78 kg

DRUGS (16)
  1. STRUCTOKABIVEN [Concomitant]
     Indication: PARENTERAL NUTRITION
     Dosage: DAILY DOSE:  UNKNOWN
     Route: 042
     Dates: start: 20090801
  2. PALLADONE [Concomitant]
     Indication: PAIN PROPHYLAXIS
     Dosage: DAILY DOSE:  UNKNOWN
     Route: 048
     Dates: start: 20090801
  3. GEMCITABINE [Suspect]
     Indication: METASTATIC NEOPLASM
     Dosage: DAILY DOSE:  UNKNOWN
     Route: 042
     Dates: start: 20090601, end: 20090901
  4. TAMSULOSIN HCL [Suspect]
     Indication: BENIGN PROSTATIC HYPERPLASIA
     Dosage: DAILY DOSE: .4 MILLIGRAM(S)
     Route: 048
     Dates: start: 20090201
  5. PANTOZOL 40 [Suspect]
     Indication: PROPHYLAXIS
     Dosage: DAILY DOSE: 40 MILLIGRAM(S)
     Route: 048
     Dates: start: 20080824
  6. TOREM 10 [Suspect]
     Indication: HYPERTENSION
     Dosage: DAILY DOSE: 5 MILLIGRAM(S)
     Route: 048
     Dates: start: 20080316
  7. EZETROL 10 [Suspect]
     Indication: HYPERCHOLESTEROLAEMIA
     Dosage: DAILY DOSE: 10 MILLIGRAM(S)
     Route: 048
     Dates: start: 20090316
  8. ISOHEXAL 5 [Suspect]
     Indication: HYPERTENSION
     Dosage: DAILY DOSE: 5 MILLIGRAM(S)
     Route: 048
     Dates: start: 20080316
  9. ASPIRIN [Suspect]
     Indication: CORONARY ARTERY DISEASE
     Dosage: DAILY DOSE: 100 MILLIGRAM(S)
     Route: 048
     Dates: start: 20080829
  10. TENORMIN [Suspect]
     Indication: HYPERTENSION
     Dosage: DAILY DOSE: 25 MILLIGRAM(S)
     Route: 048
     Dates: start: 20080801
  11. CERNEVIT-12 [Concomitant]
     Indication: PARENTERAL NUTRITION
     Dosage: DAILY DOSE: 750 MILLIGRAM(S)
     Route: 042
     Dates: start: 20090801
  12. JODID 200 [Suspect]
     Indication: PROPHYLAXIS
     Dosage: DAILY DOSE: 200 MICROGRAM(S)
     Route: 048
     Dates: start: 20080829
  13. CREON [Suspect]
     Indication: PANCREATIC ENZYME ABNORMALITY
     Dosage: DAILY DOSE: 15X25.000IE, AS USED: 25.000IE, FREQUENCY: 15
     Route: 048
     Dates: start: 20090507, end: 20090821
  14. DURAGESIC-100 [Concomitant]
     Indication: PAIN PROPHYLAXIS
     Dosage: DAILY DOSE:  UNKNOWN; AS USED: 75 MICROGRAMS
     Route: 062
     Dates: start: 20090801
  15. MOVIPREP [Concomitant]
     Indication: INFREQUENT BOWEL MOVEMENTS
     Dosage: DAILY DOSE:  UNKNOWN; FREQUENCY: AS NEEDED
     Route: 048
     Dates: start: 20090801
  16. DELIX 2.5 [Suspect]
     Indication: HYPERTENSION
     Dosage: DAILY DOSE: 2.5 MILLIGRAM(S)
     Route: 048
     Dates: start: 20080316

REACTIONS (5)
  - ESCHERICHIA SEPSIS [None]
  - JAUNDICE [None]
  - REFLUX OESOPHAGITIS [None]
  - PYREXIA [None]
  - METASTATIC NEOPLASM [None]
